FAERS Safety Report 6016335-5 (Version None)
Quarter: 2008Q4

REPORT INFORMATION
  Report Type: 
  Country: None (occurrence: None)
  Receive Date: 20081218
  Receipt Date: 20081211
  Transmission Date: 20090506
  Serious: Yes (Disabling)
  Sender: FDA-Public Use
  Company Number: 08H-163-0315344-00

PATIENT
  Sex: Male

DRUGS (2)
  1. BUPIVACAINE HCL [Suspect]
     Indication: ANALGESIA
     Dosage: NOT REPORTED, CONTINUOUS, INJECTION
     Dates: start: 20040312
  2. ROPIVACAINE (ROPIVACAINE) [Suspect]
     Indication: ANALGESIA
     Dosage: NOT REPORTED, CONTINUOUS, INJECTION
     Dates: start: 20061211

REACTIONS (2)
  - ARTHROPATHY [None]
  - CHONDROLYSIS [None]
